FAERS Safety Report 9100614 (Version 3)
Quarter: 2013Q1

REPORT INFORMATION
  Report Type: Spontaneous
  Country: FR (occurrence: FR)
  Receive Date: 20130215
  Receipt Date: 20130325
  Transmission Date: 20140127
  Serious: Yes (Hospitalization, Other)
  Sender: FDA-Public Use
  Company Number: FR-JNJFOC-20130202933

PATIENT
  Age: 82 Year
  Sex: Female

DRUGS (11)
  1. XARELTO [Suspect]
     Indication: EMBOLISM VENOUS
     Route: 048
     Dates: start: 20121011, end: 20121227
  2. XARELTO [Suspect]
     Indication: PULMONARY EMBOLISM
     Route: 048
     Dates: start: 20121011, end: 20121227
  3. GLUCOPHAGE [Concomitant]
     Indication: DIABETES MELLITUS
     Route: 065
  4. ATACAND D [Concomitant]
     Indication: HYPERTENSION
     Route: 065
  5. AMLOR [Concomitant]
     Indication: HYPERTENSION
     Route: 065
  6. PREVISCAN (FLUINDIONE) [Concomitant]
     Route: 065
     Dates: start: 20121010
  7. XELEVIA [Concomitant]
     Indication: DIABETES MELLITUS
     Route: 065
  8. DAONIL [Concomitant]
     Indication: DIABETES MELLITUS
     Route: 065
  9. LECTIL [Concomitant]
     Route: 065
  10. ATACAND [Concomitant]
     Indication: HYPERTENSION
     Route: 065
  11. LIPANTHYL [Concomitant]
     Route: 065

REACTIONS (2)
  - Pulmonary embolism [Recovering/Resolving]
  - Drug ineffective [Unknown]
